FAERS Safety Report 13564542 (Version 1)
Quarter: 2017Q2

REPORT INFORMATION
  Report Type: Report from Study
  Country: US (occurrence: US)
  Receive Date: 20170519
  Receipt Date: 20170519
  Transmission Date: 20170830
  Serious: Yes (Other)
  Sender: FDA-Public Use
  Company Number: US-BRISTOL-MYERS SQUIBB COMPANY-BMS-2017-027855

PATIENT
  Age: 60 Year
  Sex: Female
  Weight: 58 kg

DRUGS (1)
  1. ABATACEPT [Suspect]
     Active Substance: ABATACEPT
     Indication: RHEUMATOID ARTHRITIS
     Dosage: 125 MG, QWK
     Route: 058
     Dates: start: 20170306, end: 20170326

REACTIONS (5)
  - Skin exfoliation [Unknown]
  - Dry skin [Unknown]
  - Psoriasis [Unknown]
  - Erythema [Unknown]
  - Injection site abscess [Unknown]

NARRATIVE: CASE EVENT DATE: 20170325
